FAERS Safety Report 11109697 (Version 3)
Quarter: 2018Q2

REPORT INFORMATION
  Report Type: Report from Study
  Country: US (occurrence: US)
  Receive Date: 20150513
  Receipt Date: 20180601
  Transmission Date: 20180711
  Serious: Yes (Other)
  Sender: FDA-Public Use
  Company Number: US-SA-2014SA016795

PATIENT
  Age: 63 Year
  Sex: Female

DRUGS (3)
  1. TERIFLUNOMIDE [Suspect]
     Active Substance: TERIFLUNOMIDE
     Indication: MULTIPLE SCLEROSIS
     Dosage: 7 MG,QD
     Route: 048
     Dates: start: 20130517, end: 20130616
  2. INSULIN [Concomitant]
     Active Substance: INSULIN NOS
     Dosage: UNK
  3. TERIFLUNOMIDE [Suspect]
     Active Substance: TERIFLUNOMIDE
     Dosage: 14 MG,QD
     Route: 048
     Dates: start: 20130617, end: 20170801

REACTIONS (12)
  - Glaucoma [Unknown]
  - Nephrolithiasis [Not Recovered/Not Resolved]
  - Diabetic neuropathy [Unknown]
  - Pulmonary fibrosis [Not Recovered/Not Resolved]
  - Drug dose omission [Unknown]
  - Visual impairment [Unknown]
  - Fatigue [Unknown]
  - Gait disturbance [Recovering/Resolving]
  - Kidney infection [Not Recovered/Not Resolved]
  - Spinal operation [Unknown]
  - Musculoskeletal discomfort [Unknown]
  - Mental disorder [Unknown]

NARRATIVE: CASE EVENT DATE: 20140905
